FAERS Safety Report 22541152 (Version 1)
Quarter: 2023Q2

REPORT INFORMATION
  Report Type: Spontaneous
  Country: US (occurrence: US)
  Receive Date: 20230609
  Receipt Date: 20230609
  Transmission Date: 20230721
  Serious: No
  Sender: FDA-Public Use
  Company Number: US-PFIZER INC-202300214681

PATIENT
  Age: 84 Year
  Sex: Male

DRUGS (2)
  1. FUROSEMIDE [Suspect]
     Active Substance: FUROSEMIDE
     Indication: Oedema
     Dosage: 20 MG (AS NECESSARY)
  2. FUROSEMIDE [Suspect]
     Active Substance: FUROSEMIDE
     Dosage: 60 MG (AS NECESSARY)

REACTIONS (2)
  - Peripheral swelling [Not Recovered/Not Resolved]
  - Condition aggravated [Unknown]
